FAERS Safety Report 19297315 (Version 1)
Quarter: 2021Q2

REPORT INFORMATION
  Report Type: Spontaneous
  Country: DE (occurrence: DE)
  Receive Date: 20210524
  Receipt Date: 20210524
  Transmission Date: 20210717
  Serious: Yes (Other)
  Sender: FDA-Public Use
  Company Number: DE-TORRENT-00020285

PATIENT
  Age: 1 Day
  Sex: Male
  Weight: 2 kg

DRUGS (3)
  1. VENLAFAXINE [Suspect]
     Active Substance: VENLAFAXINE HYDROCHLORIDE
     Indication: DEPRESSION
     Dosage: 225 [MG/D ]
     Route: 064
     Dates: start: 20191018, end: 20200710
  2. PREGABALIN. [Concomitant]
     Active Substance: PREGABALIN
     Indication: ANXIETY
     Dosage: 50 [MG/D ]
     Route: 064
     Dates: start: 20191018, end: 20191217
  3. PIPAMPERONE [Suspect]
     Active Substance: PIPAMPERONE
     Indication: RESTLESSNESS
     Dosage: 80 [MG/D ]
     Route: 064
     Dates: start: 20191018, end: 20200710

REACTIONS (2)
  - Small for dates baby [Recovered/Resolved]
  - Foetal exposure during pregnancy [Unknown]

NARRATIVE: CASE EVENT DATE: 20200710
